FAERS Safety Report 5471604-2 (Version None)
Quarter: 2007Q3

REPORT INFORMATION
  Report Type: 
  Country: None (occurrence: None)
  Receive Date: 20070928
  Receipt Date: 20070202
  Transmission Date: 20080115
  Serious: No
  Sender: FDA-Public Use
  Company Number: US-BRISTOL-MYERS SQUIBB COMPANY-13667324

PATIENT
  Age: 36 Year
  Sex: Male
  Weight: 150 kg

DRUGS (8)
  1. DEFINITY [Suspect]
     Indication: CARDIOVASCULAR EVALUATION
     Dates: start: 20070202
  2. COREG [Concomitant]
  3. FUROSEMIDE [Concomitant]
  4. SPIRONOLACTONE [Concomitant]
  5. DIOVAN [Concomitant]
  6. DIGOXIN [Concomitant]
  7. FOLIC ACID [Concomitant]
  8. ASPIRIN [Concomitant]

REACTIONS (1)
  - BACK PAIN [None]
